FAERS Safety Report 4723749-X (Version None)
Quarter: 2005Q3

REPORT INFORMATION
  Report Type: 
  Country: None (occurrence: None)
  Receive Date: 20050720
  Receipt Date: 20050720
  Transmission Date: 20060218
  Serious: No
  Sender: FDA-Public Use
  Company Number: None

PATIENT
  Age: 81 Year
  Sex: Male
  Weight: 79.3795 kg

DRUGS (2)
  1. PRINIVIL [Suspect]
     Indication: HYPERTENSION
     Dosage: DAILY
  2. ZOSYN [Suspect]
     Indication: PNEUMONIA
     Dosage: Q 6 H
     Route: 042

REACTIONS (2)
  - LOCALISED OEDEMA [None]
  - SWELLING FACE [None]
